FAERS Safety Report 16844837 (Version 2)
Quarter: 2019Q3

REPORT INFORMATION
  Report Type: Spontaneous
  Country: JP (occurrence: JP)
  Receive Date: 20190924
  Receipt Date: 20190924
  Transmission Date: 20191005
  Serious: Yes (Death)
  Sender: FDA-Public Use
  Company Number: JP-PFIZER INC-2019397500

PATIENT
  Age: 72 Year
  Sex: Male

DRUGS (2)
  1. METHYLPREDNISOLONE. [Suspect]
     Active Substance: METHYLPREDNISOLONE
     Indication: ACUTE FEBRILE NEUTROPHILIC DERMATOSIS
     Dosage: 1 G, DAILY
  2. METHYLPREDNISOLONE. [Suspect]
     Active Substance: METHYLPREDNISOLONE
     Indication: MENINGITIS

REACTIONS (3)
  - Meningitis cryptococcal [Fatal]
  - Respiratory failure [Fatal]
  - Immune reconstitution inflammatory syndrome [Fatal]
